FAERS Safety Report 5062666-5 (Version None)
Quarter: 2006Q3

REPORT INFORMATION
  Report Type: 
  Country: None (occurrence: None)
  Receive Date: 20060724
  Receipt Date: 20060724
  Transmission Date: 20061208
  Serious: Yes (Hospitalization)
  Sender: FDA-Public Use
  Company Number: None

PATIENT
  Sex: Male

DRUGS (2)
  1. SPIRONOLACTONE [Suspect]
     Indication: POLYURIA
     Dosage: 25 MG ONCE DAILY PO
     Route: 048
     Dates: start: 20060603, end: 20060603
  2. FUROSEMIDE [Suspect]
     Indication: POLYURIA
     Dosage: 40 MG ONCE DAILY PO
     Route: 048
     Dates: start: 20060603, end: 20060603

REACTIONS (1)
  - RENAL FAILURE ACUTE [None]
